FAERS Safety Report 4595150-3 (Version None)
Quarter: 2005Q1

REPORT INFORMATION
  Report Type: 
  Country: None (occurrence: None)
  Receive Date: 20050223
  Receipt Date: 20050211
  Transmission Date: 20050727
  Serious: Yes (Other)
  Sender: FDA-Public Use
  Company Number: 2004104104

PATIENT
  Age: 68 Year
  Sex: Female
  Weight: 98.4306 kg

DRUGS (8)
  1. LIPITOR [Suspect]
     Indication: BLOOD CHOLESTEROL INCREASED
     Dosage: 10MG (10 MG, 1 IN 1 D), ORAL
     Route: 048
     Dates: start: 20040205, end: 20040101
  2. LIPITOR [Suspect]
     Indication: DYSLIPIDAEMIA
     Dosage: 10MG (10 MG, 1 IN 1 D), ORAL
     Route: 048
     Dates: start: 20040205, end: 20040101
  3. ATENOLOL [Concomitant]
  4. CALCIUM (CALCIUM) [Concomitant]
  5. ASPIRIN [Concomitant]
  6. MULTIVITAMIN [Concomitant]
  7. ACIPHEX [Concomitant]
  8. FISH OIL (FISH OIL) [Concomitant]

REACTIONS (10)
  - ACROCHORDON [None]
  - CARDIAC VALVE DISEASE [None]
  - CARPAL TUNNEL SYNDROME [None]
  - LOW DENSITY LIPOPROTEIN INCREASED [None]
  - MUSCULOSKELETAL PAIN [None]
  - MYALGIA [None]
  - ROSEOLA [None]
  - SKIN PAPILLOMA [None]
  - URINARY INCONTINENCE [None]
  - WEIGHT DECREASED [None]
